FAERS Safety Report 7579507-4 (Version None)
Quarter: 2011Q2

REPORT INFORMATION
  Report Type: 
  Country: None (occurrence: None)
  Receive Date: 20110629
  Receipt Date: 20090316
  Transmission Date: 20111010
  Serious: Yes (Death, Other)
  Sender: FDA-Public Use
  Company Number: US-BAYER-200915564NA

PATIENT
  Age: 65 Year
  Sex: Male
  Weight: 110 kg

DRUGS (19)
  1. NORVASC [Concomitant]
     Dosage: UNK
     Route: 048
     Dates: end: 20000605
  2. VERSED [Concomitant]
     Dosage: 10 MG
     Route: 042
     Dates: start: 20000606, end: 20000606
  3. CLONIDINE [Concomitant]
     Dosage: UNK
     Route: 048
     Dates: end: 20000605
  4. COLACE [Concomitant]
     Dosage: UNK
     Route: 048
     Dates: start: 20000605
  5. ANCEF [Concomitant]
     Dosage: 1 GRAM
     Route: 042
     Dates: start: 20000606, end: 20000606
  6. VANCOMYCIN [Concomitant]
     Dosage: 1 GRAM
     Route: 042
     Dates: start: 20000606, end: 20000606
  7. WHOLE BLOOD [Concomitant]
     Dosage: 2 U, ONCE
     Dates: start: 20000606
  8. ZESTRIL [Concomitant]
     Dosage: UNK
     Route: 048
     Dates: end: 20000605
  9. TRASYLOL [Suspect]
     Dosage: 50 ML PER HOUR
     Route: 042
     Dates: start: 20000606, end: 20000606
  10. TRENTAL [Concomitant]
     Dosage: UNK
     Route: 048
     Dates: end: 20000605
  11. TRASYLOL [Suspect]
     Dosage: 200 CC PRIME
     Route: 042
     Dates: start: 20000606, end: 20000606
  12. LASIX [Concomitant]
     Dosage: UNK
     Route: 048
     Dates: end: 20000605
  13. LASIX [Concomitant]
     Dosage: 40 MG
     Route: 042
     Dates: start: 20000606, end: 20000606
  14. THALLIUM (201 TL) [Concomitant]
     Dosage: UNK
     Route: 042
     Dates: start: 20000530, end: 20000530
  15. CALCIUM CHLORIDE [Concomitant]
     Dosage: 1 GRAM
     Route: 042
     Dates: start: 20000606, end: 20000606
  16. DIPIRIDAMOL [Concomitant]
     Dosage: UNK
     Route: 042
     Dates: start: 20000530, end: 20000530
  17. HEPARIN [Concomitant]
     Dosage: UNK
     Route: 042
     Dates: start: 20000529, end: 20000606
  18. TRASYLOL [Suspect]
     Indication: CORONARY ARTERY BYPASS
     Dosage: UNK, INITIAL TEST DOSE
     Route: 042
     Dates: start: 20000606, end: 20000606
  19. HEPARIN [Concomitant]
     Dosage: 330 MG
     Route: 042
     Dates: start: 20000606, end: 20000606

REACTIONS (10)
  - DEATH [None]
  - DEPRESSION [None]
  - INJURY [None]
  - PAIN [None]
  - ADVERSE EVENT [None]
  - ANXIETY [None]
  - RENAL FAILURE [None]
  - UNEVALUABLE EVENT [None]
  - ANHEDONIA [None]
  - FEAR [None]
